FAERS Safety Report 25932351 (Version 1)
Quarter: 2025Q4

REPORT INFORMATION
  Report Type: Report from Study
  Country: US (occurrence: US)
  Receive Date: 20251016
  Receipt Date: 20251016
  Transmission Date: 20260117
  Serious: Yes (Hospitalization)
  Sender: ALEXION PHARMACEUTICALS
  Company Number: US-AstraZeneca-CH-00971272A

PATIENT
  Sex: Female
  Weight: 72.109 kg

DRUGS (1)
  1. ACALABRUTINIB [Suspect]
     Active Substance: ACALABRUTINIB
     Indication: B-cell lymphoma
     Dosage: 100 MILLIGRAM, BID
     Dates: start: 202411

REACTIONS (3)
  - Blood sodium decreased [Recovering/Resolving]
  - Renal impairment [Recovering/Resolving]
  - Product dose omission issue [Recovering/Resolving]
